FAERS Safety Report 26109050 (Version 1)
Quarter: 2025Q4

REPORT INFORMATION
  Report Type: Report from Study
  Country: EU (occurrence: EU)
  Receive Date: 20251201
  Receipt Date: 20251201
  Transmission Date: 20260118
  Serious: Yes (Hospitalization, Other)
  Sender: KYOWA
  Company Number: EU-KYOWAKIRIN-2024KK013232

PATIENT

DRUGS (13)
  1. MOGAMULIZUMAB [Suspect]
     Active Substance: MOGAMULIZUMAB
     Indication: Cutaneous T-cell lymphoma
     Dosage: 80 MG, 1X/WEEK AND THEN EVERY TWO WEEKS( 1ST INFUSION)
     Route: 042
     Dates: start: 20240130
  2. MOGAMULIZUMAB [Suspect]
     Active Substance: MOGAMULIZUMAB
     Dosage: 80 MG, 1X/WEEK (2ND INFUSION)
     Route: 042
     Dates: start: 20240206
  3. MOGAMULIZUMAB [Suspect]
     Active Substance: MOGAMULIZUMAB
     Dosage: 80 MG, 1X/WEEK (3RD INFUSION)
     Route: 042
     Dates: start: 20240213
  4. MOGAMULIZUMAB [Suspect]
     Active Substance: MOGAMULIZUMAB
     Dosage: 80 MG, 1X/WEEK (4TH INFUSION)
     Route: 042
     Dates: start: 20240220
  5. MOGAMULIZUMAB [Suspect]
     Active Substance: MOGAMULIZUMAB
     Dosage: 80 MG, 1X/2 WEEKS (5TH INFUSION)
     Route: 042
     Dates: start: 20240305
  6. MOGAMULIZUMAB [Suspect]
     Active Substance: MOGAMULIZUMAB
     Dosage: 80 MG, 1X/2 WEEKS (6TH INFUSION)
     Route: 042
     Dates: start: 20240320
  7. MOGAMULIZUMAB [Suspect]
     Active Substance: MOGAMULIZUMAB
     Dosage: 80 MG, 1X/2 WEEKS (7 TH INFUSION)
     Route: 042
     Dates: start: 20240402
  8. MOGAMULIZUMAB [Suspect]
     Active Substance: MOGAMULIZUMAB
     Dosage: 80 MG, 1X/2 WEEKS (8TH INFUSION)
     Route: 042
     Dates: start: 20240416
  9. MOGAMULIZUMAB [Suspect]
     Active Substance: MOGAMULIZUMAB
     Dosage: 80 MG, 1X/2 WEEKS (9 TH INFUSION)
     Route: 042
     Dates: start: 20240430
  10. MOGAMULIZUMAB [Suspect]
     Active Substance: MOGAMULIZUMAB
     Dosage: 80 MG, 1X/2 WEEKS (10 INFUSION)
     Route: 042
     Dates: start: 20250516
  11. MOGAMULIZUMAB [Suspect]
     Active Substance: MOGAMULIZUMAB
     Dosage: 80 MG, 1X/2 WEEKS ((11 INFUSION))
     Route: 042
     Dates: start: 20250528
  12. MOGAMULIZUMAB [Suspect]
     Active Substance: MOGAMULIZUMAB
     Dosage: 80 MG, 1X/2 WEEKS (12 TH INFUSION))
     Route: 042
     Dates: start: 20250612
  13. MOGAMULIZUMAB [Suspect]
     Active Substance: MOGAMULIZUMAB
     Dosage: 78 MG, 1X/2 WEEKS (13 TH INFUSION)
     Route: 042
     Dates: start: 20250626

REACTIONS (12)
  - Cytomegalovirus chorioretinitis [Recovered/Resolved with Sequelae]
  - Sepsis [Recovered/Resolved]
  - Staphylococcal bacteraemia [Recovered/Resolved]
  - Iatrogenic Kaposi sarcoma [Not Recovered/Not Resolved]
  - Oesophageal infection [Recovered/Resolved]
  - Superinfection fungal [Recovered/Resolved]
  - Pneumonia [Recovered/Resolved]
  - Hypophysitis [Not Recovered/Not Resolved]
  - Oral fungal infection [Recovered/Resolved]
  - Lymphopenia [Not Recovered/Not Resolved]
  - Disease progression [Unknown]
  - Gamma-glutamyltransferase increased [Not Recovered/Not Resolved]

NARRATIVE: CASE EVENT DATE: 20240304
